FAERS Safety Report 5695042-2 (Version None)
Quarter: 2008Q2

REPORT INFORMATION
  Report Type: 
  Country: None (occurrence: None)
  Receive Date: 20080404
  Receipt Date: 20080325
  Transmission Date: 20081010
  Serious: Yes (Death, Other)
  Sender: FDA-Public Use
  Company Number: CH-PFIZER INC-2008026995

PATIENT
  Sex: Male

DRUGS (4)
  1. ZYVOX [Suspect]
     Indication: ENDOCARDITIS
  2. RIFAMPICIN [Concomitant]
  3. VANCOMYCIN [Concomitant]
  4. GARAMYCIN [Concomitant]

REACTIONS (3)
  - ACUTE HEPATIC FAILURE [None]
  - CONDITION AGGRAVATED [None]
  - HEPATIC ENZYME INCREASED [None]
